FAERS Safety Report 25271139 (Version 3)
Quarter: 2025Q2

REPORT INFORMATION
  Report Type: Spontaneous
  Country: CH (occurrence: CH)
  Receive Date: 20250506
  Receipt Date: 20250513
  Transmission Date: 20250716
  Serious: Yes (Other)
  Sender: BIOVITRUM
  Company Number: CH-BIOVITRUM-2025-CH-006170

PATIENT
  Age: 12 Year
  Sex: Female

DRUGS (3)
  1. ANAKINRA [Suspect]
     Active Substance: ANAKINRA
     Indication: Haemophagocytic lymphohistiocytosis
     Route: 042
  2. RUXOLITINIB [Suspect]
     Active Substance: RUXOLITINIB
     Indication: Haemophagocytic lymphohistiocytosis
     Route: 048
     Dates: end: 20250508
  3. DEXAMETHASONE [Suspect]
     Active Substance: DEXAMETHASONE
     Indication: Haemophagocytic lymphohistiocytosis
     Route: 042

REACTIONS (6)
  - Acute kidney injury [Recovering/Resolving]
  - Liver injury [Recovering/Resolving]
  - Respiratory disorder [Recovering/Resolving]
  - Cytopenia [Recovering/Resolving]
  - Coagulopathy [Recovering/Resolving]
  - Off label use [Not Recovered/Not Resolved]

NARRATIVE: CASE EVENT DATE: 20250425
